FAERS Safety Report 4938788-3 (Version None)
Quarter: 2006Q1

REPORT INFORMATION
  Report Type: 
  Country: None (occurrence: None)
  Receive Date: 20060306
  Receipt Date: 20060222
  Transmission Date: 20060701
  Serious: Yes (Death, Hospitalization)
  Sender: FDA-Public Use
  Company Number: 2006-01-1013

PATIENT
  Age: 56 Year
  Sex: Female

DRUGS (5)
  1. PEG-INTRON [Suspect]
     Indication: HEPATITIS C
     Dosage: 120 MCG QWK SUBCUTANEOUS
     Route: 058
     Dates: start: 20051216
  2. RIBASPHERE [Suspect]
     Indication: HEPATITIS C
     Dosage: 1200 MG QD ORAL
     Route: 048
     Dates: start: 20051216
  3. DOCUSATE SODIUM CAPSULES [Concomitant]
  4. INDERAL [Concomitant]
  5. PROZAC [Concomitant]

REACTIONS (3)
  - COMA [None]
  - INFECTION [None]
  - RESPIRATORY DISORDER [None]
